FAERS Safety Report 7668373-4 (Version None)
Quarter: 2011Q3

REPORT INFORMATION
  Report Type: 
  Country: None (occurrence: None)
  Receive Date: 20110803
  Receipt Date: 20110720
  Transmission Date: 20111222
  Serious: Yes (Hospitalization, Other)
  Sender: FDA-Public Use
  Company Number: 2011MA009183

PATIENT
  Age: 44 Year
  Sex: Female

DRUGS (1)
  1. SULFATRIM PEDIATRIC [Suspect]
     Indication: URINARY TRACT INFECTION
     Dosage: 960 MG, QD, PO
     Route: 048

REACTIONS (16)
  - HAEMODIALYSIS [None]
  - VOMITING [None]
  - PAIN [None]
  - ESCHERICHIA URINARY TRACT INFECTION [None]
  - URTICARIA [None]
  - CARDIAC MURMUR [None]
  - HYPERGAMMAGLOBULINAEMIA [None]
  - HAEMOLYTIC ANAEMIA [None]
  - RENAL FAILURE [None]
  - CHEST DISCOMFORT [None]
  - NAUSEA [None]
  - FATIGUE [None]
  - DEHYDRATION [None]
  - PARVOVIRUS B19 TEST POSITIVE [None]
  - CHILLS [None]
  - HAEMOGLOBINURIA [None]
